FAERS Safety Report 11460092 (Version 1)
Quarter: 2015Q3

REPORT INFORMATION
  Report Type: Spontaneous
  Country: GB (occurrence: GB)
  Receive Date: 20150904
  Receipt Date: 20150904
  Transmission Date: 20151125
  Serious: Yes (Other)
  Sender: FDA-Public Use
  Company Number: GB-TEVA-589303ACC

PATIENT
  Age: 68 Year
  Sex: Female
  Weight: 70 kg

DRUGS (3)
  1. AMLODIPINE [Suspect]
     Active Substance: AMLODIPINE BESYLATE
     Dosage: 10 MILLIGRAM DAILY;
     Dates: start: 1997
  2. ENALAPRIL [Suspect]
     Active Substance: ENALAPRIL
     Indication: HYPERTENSION
     Dosage: 20 MILLIGRAM DAILY;
     Dates: start: 1997
  3. ENALAPRIL [Suspect]
     Active Substance: ENALAPRIL
     Dates: start: 2009

REACTIONS (2)
  - Renal disorder [Unknown]
  - Proteinuria [Not Recovered/Not Resolved]

NARRATIVE: CASE EVENT DATE: 1997
